FAERS Safety Report 9051288 (Version 1)
Quarter: 2013Q1

REPORT INFORMATION
  Report Type: Spontaneous
  Country: GR (occurrence: GR)
  Receive Date: 20130206
  Receipt Date: 20130206
  Transmission Date: 20140127
  Serious: Yes (Other)
  Sender: FDA-Public Use
  Company Number: PHHY2013GR010880

PATIENT
  Age: 60 Year
  Sex: Female

DRUGS (2)
  1. TRILEPTAL [Suspect]
     Dosage: 2 DF, DAILY (MORNING/NIGHT)
  2. TRILEPTAL [Suspect]
     Dosage: 1 DF, DAILY (DOSE REDUCED TO HALF EVERY 2-3 DAYS)

REACTIONS (3)
  - Hypoaesthesia [Not Recovered/Not Resolved]
  - Musculoskeletal stiffness [Not Recovered/Not Resolved]
  - Peroneal nerve palsy [Not Recovered/Not Resolved]
